FAERS Safety Report 6848970-6 (Version None)
Quarter: 2010Q3

REPORT INFORMATION
  Report Type: 
  Country: None (occurrence: None)
  Receive Date: 20100716
  Receipt Date: 20070923
  Transmission Date: 20110219
  Serious: No
  Sender: FDA-Public Use
  Company Number: US-PFIZER INC-2007081031

PATIENT
  Sex: Female
  Weight: 131.81 kg

DRUGS (2)
  1. CHANTIX [Suspect]
     Indication: SMOKING CESSATION THERAPY
     Dates: start: 20070901
  2. DRUG, UNSPECIFIED [Concomitant]

REACTIONS (2)
  - RESTLESS LEGS SYNDROME [None]
  - STRESS [None]
